FAERS Safety Report 6839575-1 (Version None)
Quarter: 2010Q3

REPORT INFORMATION
  Report Type: 
  Country: None (occurrence: None)
  Receive Date: 20100714
  Receipt Date: 20100326
  Transmission Date: 20110219
  Serious: No
  Sender: FDA-Public Use
  Company Number: A0852181A

PATIENT
  Age: 67 Year
  Sex: Female

DRUGS (6)
  1. FLOVENT [Suspect]
     Indication: ASTHMA
     Dosage: 2PUFF PER DAY
     Route: 055
     Dates: start: 20100129
  2. HORMONE REPLACEMENT [Concomitant]
  3. THYROID MEDICATION [Concomitant]
  4. ACTONEL [Concomitant]
  5. XALATAN [Concomitant]
  6. PEPCID [Concomitant]

REACTIONS (1)
  - CANDIDIASIS [None]
